FAERS Safety Report 5655610-0 (Version None)
Quarter: 2008Q1

REPORT INFORMATION
  Report Type: 
  Country: None (occurrence: None)
  Receive Date: 20080307
  Receipt Date: 20080225
  Transmission Date: 20080703
  Serious: Yes (Other)
  Sender: FDA-Public Use
  Company Number: DE-JNJFOC-20071203337

PATIENT
  Sex: Female

DRUGS (1)
  1. IMODIUM AKUT KAPSEIN [Suspect]
     Indication: DIARRHOEA
     Dosage: 4-12 MG PER DAY

REACTIONS (2)
  - DIARRHOEA [None]
  - FLATULENCE [None]
